FAERS Safety Report 5787317-3 (Version None)
Quarter: 2008Q2

REPORT INFORMATION
  Report Type: 
  Country: None (occurrence: None)
  Receive Date: 20080620
  Receipt Date: 20080606
  Transmission Date: 20081010
  Serious: Yes (Other)
  Sender: FDA-Public Use
  Company Number: 2008AL004726

PATIENT
  Age: 80 Year
  Sex: Male
  Weight: 70.3075 kg

DRUGS (2)
  1. DIGOXIN [Suspect]
     Dosage: 0.125 MG, DAILY, PO
     Route: 048
     Dates: start: 20040101
  2. COUMADIN [Concomitant]

REACTIONS (4)
  - CATARACT [None]
  - HALLUCINATION, VISUAL [None]
  - OVERDOSE [None]
  - VISION BLURRED [None]
